FAERS Safety Report 9008526 (Version 1)
Quarter: 2013Q1

REPORT INFORMATION
  Report Type: Spontaneous
  Country: US (occurrence: US)
  Receive Date: 20130111
  Receipt Date: 20130111
  Transmission Date: 20140127
  Serious: Yes (Other)
  Sender: FDA-Public Use
  Company Number: US-MERCK-1301USA002719

PATIENT
  Age: 55 Year
  Sex: Female

DRUGS (5)
  1. OMEPRAZOLE [Suspect]
     Route: 048
  2. LOSARTAN POTASSIUM [Suspect]
     Route: 048
  3. TRIMETHOPRIM [Suspect]
  4. ACETAMINOPHEN (+) CODEINE [Suspect]
  5. LACTULOSE [Suspect]

REACTIONS (3)
  - Sputum retention [Unknown]
  - Myalgia [Unknown]
  - Asthma [Unknown]
